FAERS Safety Report 9892182 (Version 1)
Quarter: 2014Q1

REPORT INFORMATION
  Report Type: Spontaneous
  Country: SE (occurrence: SE)
  Receive Date: 20140212
  Receipt Date: 20140212
  Transmission Date: 20141002
  Serious: Yes (Hospitalization)
  Sender: FDA-Public Use
  Company Number: SE-TEVA-460910ISR

PATIENT
  Age: 27 Year
  Sex: Female

DRUGS (1)
  1. DIMOR [Suspect]

REACTIONS (4)
  - Skin reaction [Unknown]
  - Hypersensitivity [Unknown]
  - Pruritus [Unknown]
  - Chest discomfort [Unknown]
